FAERS Safety Report 6908754-7 (Version None)
Quarter: 2010Q3

REPORT INFORMATION
  Report Type: 
  Country: None (occurrence: None)
  Receive Date: 20100805
  Receipt Date: 20100727
  Transmission Date: 20110219
  Serious: Yes (Hospitalization)
  Sender: FDA-Public Use
  Company Number: A0855784B

PATIENT
  Sex: Male
  Weight: 72.5 kg

DRUGS (7)
  1. ELTROMBOPAG [Suspect]
     Indication: THROMBOCYTOPENIA
     Dosage: 25MG PER DAY
     Route: 048
     Dates: start: 20100113, end: 20100126
  2. BLINDED TRIAL MEDICATION [Suspect]
     Indication: THROMBOCYTOPENIA
     Route: 048
     Dates: start: 20100224
  3. PEG-INTRON [Suspect]
     Dosage: 120MCG WEEKLY
     Route: 058
     Dates: start: 20100224
  4. REBETOL [Suspect]
     Route: 048
     Dates: start: 20100224
  5. PEGYLATED INTERFERON ALPHA 2B [Concomitant]
     Indication: HEPATITIS C
     Dosage: 50UG WEEKLY
     Route: 058
     Dates: start: 20100113
  6. SPASFON [Concomitant]
  7. NOVOMIX [Concomitant]

REACTIONS (5)
  - CHILLS [None]
  - COUGH [None]
  - HAEMOPTYSIS [None]
  - SPEECH DISORDER [None]
  - THROMBOCYTOPENIA [None]
